FAERS Safety Report 6178458-X (Version None)
Quarter: 2009Q2

REPORT INFORMATION
  Report Type: 
  Country: None (occurrence: None)
  Receive Date: 20090430
  Receipt Date: 20090421
  Transmission Date: 20091009
  Serious: Yes (Other)
  Sender: FDA-Public Use
  Company Number: TRP_06185_2009

PATIENT
  Age: 21 Year
  Sex: Female

DRUGS (4)
  1. AMPHOTERICIN B [Suspect]
     Indication: ANTIFUNGAL TREATMENT
     Dosage: (1 MG/KG PER DAY)
  2. AMPHOTERICIN B [Suspect]
     Indication: FEBRILE NEUTROPENIA
     Dosage: (1 MG/KG PER DAY)
  3. AMPHOTERICIN B [Suspect]
     Indication: ANTIFUNGAL TREATMENT
     Dosage: (1 MG/KG PER DAY)
  4. AMPHOTERICIN B [Suspect]
     Indication: FEBRILE NEUTROPENIA
     Dosage: (1 MG/KG PER DAY)

REACTIONS (5)
  - CARDIAC ARREST [None]
  - HYPOKALAEMIA [None]
  - METABOLIC ACIDOSIS [None]
  - RENAL DISORDER [None]
  - VOMITING [None]
